FAERS Safety Report 22588939 (Version 1)
Quarter: 2023Q2

REPORT INFORMATION
  Report Type: Spontaneous
  Country: US (occurrence: None)
  Receive Date: 20230609
  Receipt Date: 20230609
  Transmission Date: 20230722
  Serious: Yes (Life-Threatening, Hospitalization)
  Sender: FDA-Public Use
  Company Number: None

PATIENT
  Age: 74 Year
  Sex: Male
  Weight: 89.4 kg

DRUGS (9)
  1. EPCLUSA [Suspect]
     Active Substance: SOFOSBUVIR\VELPATASVIR
     Indication: Chronic hepatitis C
     Dates: start: 20230306, end: 20230605
  2. ZOSYN [Suspect]
     Active Substance: PIPERACILLIN SODIUM\TAZOBACTAM SODIUM
     Dates: start: 20230603
  3. morphine 4mg IV push [Concomitant]
     Dates: start: 20230604, end: 20230604
  4. Ondansetron 4mg IV push [Concomitant]
     Dates: start: 20230604, end: 20230604
  5. NORCO [Concomitant]
     Active Substance: ACETAMINOPHEN\HYDROCODONE BITARTRATE
     Dates: start: 20230604, end: 20230604
  6. Levetiracetam 2000 mg IV [Concomitant]
     Dates: start: 20230603
  7. Lactulose 20g PO [Concomitant]
  8. Lorazepam 1 mg IV (x2) [Concomitant]
     Dates: start: 20230604, end: 20230604
  9. Naloxone 0.4mg IV [Concomitant]
     Dates: start: 20230604, end: 20230604

REACTIONS (9)
  - Abdominal pain [None]
  - Faeces discoloured [None]
  - Presyncope [None]
  - Dialysis [None]
  - Diverticulitis [None]
  - Colonic abscess [None]
  - Mental status changes [None]
  - Seizure [None]
  - Ventricular tachycardia [None]

NARRATIVE: CASE EVENT DATE: 20230605
